FAERS Safety Report 14916636 (Version 1)
Quarter: 2018Q2

REPORT INFORMATION
  Report Type: Report from Study
  Country: US (occurrence: US)
  Receive Date: 20180519
  Receipt Date: 20180519
  Transmission Date: 20180711
  Serious: Yes (Hospitalization, Other)
  Sender: FDA-Public Use
  Company Number: US-TESARO, INC-US-2018TSO02181

PATIENT

DRUGS (2)
  1. ZEJULA [Suspect]
     Active Substance: NIRAPARIB
     Indication: MALIGNANT PERITONEAL NEOPLASM
     Dosage: 300 MG, QD
     Route: 048
     Dates: start: 20180410
  2. ZEJULA [Suspect]
     Active Substance: NIRAPARIB
     Dosage: 300 MG, QD
     Route: 048
     Dates: start: 20180413

REACTIONS (10)
  - Paraesthesia oral [Unknown]
  - Sunburn [Unknown]
  - Oral discomfort [Unknown]
  - Transfusion [Recovered/Resolved]
  - Emotional distress [Unknown]
  - Insomnia [Unknown]
  - Constipation [Unknown]
  - Platelet count decreased [Recovered/Resolved]
  - Lip pain [Unknown]
  - Fatigue [Unknown]
